FAERS Safety Report 4854757-6 (Version None)
Quarter: 2005Q4

REPORT INFORMATION
  Report Type: 
  Country: None (occurrence: None)
  Receive Date: 20051214
  Receipt Date: 20051214
  Transmission Date: 20060501
  Serious: No
  Sender: FDA-Public Use
  Company Number: None

PATIENT
  Age: 62 Year
  Sex: Male
  Weight: 87.9978 kg

DRUGS (3)
  1. EZETIMIBE   10 MG [Suspect]
     Indication: HYPERLIPIDAEMIA
     Dosage: 10 MG  DAILY  PO
     Route: 048
  2. LISINOPRIL [Concomitant]
  3. METFORMIN [Concomitant]

REACTIONS (2)
  - NAUSEA [None]
  - VOMITING [None]
